FAERS Safety Report 9504049 (Version 9)
Quarter: 2014Q2

REPORT INFORMATION
  Report Type: Report from Study
  Country: FR (occurrence: FR)
  Receive Date: 20130906
  Receipt Date: 20140627
  Transmission Date: 20141212
  Serious: Yes (Hospitalization)
  Sender: FDA-Public Use
  Company Number: FR-PFIZER INC-2013246670

PATIENT
  Age: 76 Year
  Sex: Male
  Weight: 76 kg

DRUGS (10)
  1. TEMSIROLIMUS [Suspect]
     Indication: MANTLE CELL LYMPHOMA REFRACTORY
     Dosage: 15 MG, CYCLIC (CYCLE1, DAY 1) EVERY 3 WEEKS FOR 6 CYCLES
     Dates: start: 20130523, end: 20130820
  2. RITUXIMAB [Concomitant]
     Indication: MANTLE CELL LYMPHOMA REFRACTORY
     Dosage: 375 MG/M2, ON DAY 1 EVERY 3 WEEKS FOR 6 CYCLES
     Route: 042
     Dates: start: 20130522, end: 20130907
  3. CYCLOPHOSPHAMIDE [Concomitant]
     Indication: MANTLE CELL LYMPHOMA REFRACTORY
     Dosage: 750 MG/M2, ON DAY 1 EVERY 3 WEEKS FOR 6 CYCLES
     Route: 042
     Dates: start: 20130522, end: 20130907
  4. DOXORUBICIN [Concomitant]
     Indication: MANTLE CELL LYMPHOMA REFRACTORY
     Dosage: 50 MG/M2, ON DAY 1 EVERY 3 WEEKS FOR 6 CYCLES
     Route: 042
     Dates: start: 20130522, end: 20130907
  5. VINCRISTINE [Concomitant]
     Indication: MANTLE CELL LYMPHOMA REFRACTORY
     Dosage: 1.4 MG, CYCLIC (ON DAY 1 EVERY 3 WEEKS FOR 6 CYCLES)
     Route: 042
     Dates: start: 20130522, end: 20130907
  6. PREDNISONE [Concomitant]
     Indication: MANTLE CELL LYMPHOMA REFRACTORY
     Dosage: 40 MG/M2, ON DAY 1 TO 5 EVERY 3 WEEKS FOR 6 CYCLES
     Route: 048
     Dates: start: 20130522, end: 20130907
  7. TAHOR [Concomitant]
     Indication: HYPERCHOLESTEROLAEMIA
     Dosage: 10 MG, DAILY (IN THE EVENING)
  8. BACTRIM FORTE [Concomitant]
     Indication: PROPHYLAXIS
     Dosage: 1 TABLET, 3 TIMES PER WEEK
     Dates: start: 20130522
  9. ZELITREX [Concomitant]
     Indication: PROPHYLAXIS
     Dosage: 500 MG, 2X/DAY
     Dates: start: 20130522
  10. LEDERFOLIN [Concomitant]
     Indication: PROPHYLAXIS
     Dosage: 25 MG, 3 TIMES PER WEEK
     Dates: start: 20130522

REACTIONS (1)
  - Febrile bone marrow aplasia [Recovered/Resolved]
